FAERS Safety Report 19469006 (Version 2)
Quarter: 2021Q2

REPORT INFORMATION
  Report Type: Spontaneous
  Country: JP (occurrence: JP)
  Receive Date: 20210629
  Receipt Date: 20210630
  Transmission Date: 20210717
  Serious: Yes (Death, Other)
  Sender: FDA-Public Use
  Company Number: JP-AMGEN-JPNSP2021070157

PATIENT
  Sex: Male

DRUGS (4)
  1. PRALIA [Suspect]
     Active Substance: DENOSUMAB
     Indication: OSTEOPOROSIS
     Dosage: 60 MILLIGRAM
     Route: 058
     Dates: start: 20210421, end: 20210421
  2. DENOTAS [Suspect]
     Active Substance: CALCIUM CARBONATE\CHOLECALCIFEROL\MAGNESIUM CARBONATE
     Indication: PRODUCT USED FOR UNKNOWN INDICATION
     Dosage: UNK
     Route: 065
  3. EDIROL [Concomitant]
     Active Substance: ELDECALCITOL
     Dosage: 0.5 MICROGRAM, QD
     Route: 048
     Dates: start: 20210428
  4. CALCIUM L?ASPARTATE [Concomitant]
     Dosage: 200 MILLIGRAM, TID
     Route: 048
     Dates: start: 20210428

REACTIONS (6)
  - Gastrointestinal haemorrhage [Fatal]
  - Melaena [Fatal]
  - Hypocalcaemia [Unknown]
  - White blood cell count increased [Unknown]
  - C-reactive protein increased [Unknown]
  - Pyrexia [Fatal]

NARRATIVE: CASE EVENT DATE: 2021
